FAERS Safety Report 18855651 (Version 1)
Quarter: 2021Q1

REPORT INFORMATION
  Report Type: Other
  Country: US (occurrence: US)
  Receive Date: 20210206
  Receipt Date: 20210206
  Transmission Date: 20210420
  Serious: Yes (Hospitalization)
  Sender: FDA-Public Use
  Company Number: US-ROCHE-2764388

PATIENT
  Sex: Female

DRUGS (1)
  1. OCREVUS [Suspect]
     Active Substance: OCRELIZUMAB
     Indication: MULTIPLE SCLEROSIS
     Dosage: DATE OF TREATMENT: 15/OCT/2019, 11/APR/2019, 24/OCT/2018, 10/OCT/2018, 15/APR/2020
     Route: 065
     Dates: start: 20181010, end: 20191015

REACTIONS (4)
  - Infection [Unknown]
  - Cardiac failure congestive [Unknown]
  - Asthma [Unknown]
  - Diabetes mellitus [Unknown]
